FAERS Safety Report 7358172-5 (Version None)
Quarter: 2011Q1

REPORT INFORMATION
  Report Type: 
  Country: None (occurrence: None)
  Receive Date: 20110317
  Receipt Date: 20110217
  Transmission Date: 20110831
  Serious: No
  Sender: FDA-Public Use
  Company Number: US-B.I. PHARMACEUTICALS,INC./RIDGEFIELD-2011-BP-06032BP

PATIENT
  Age: 77 Year
  Sex: Female

DRUGS (7)
  1. VEMLAFAXINDE [Concomitant]
     Indication: ANXIETY
     Dosage: 3.75 MG
     Route: 048
     Dates: start: 20060101
  2. ANAGRELIDE HCL [Concomitant]
     Indication: PLATELET COUNT INCREASED
     Route: 048
     Dates: start: 20060101
  3. PRADAXA [Suspect]
     Indication: ATRIAL FIBRILLATION
     Dosage: 150 MG
     Route: 048
     Dates: start: 20110120
  4. LOSARTAN [Concomitant]
     Indication: HYPERTENSION
     Route: 048
     Dates: start: 20100101
  5. DEXAZONIN [Concomitant]
     Indication: HYPERTENSION
     Route: 048
     Dates: start: 20100101
  6. HYDROCODONE BITARTRATE [Concomitant]
     Indication: PAIN
     Route: 048
     Dates: start: 20010101
  7. REQUIP [Concomitant]
     Indication: RESTLESS LEGS SYNDROME
     Dosage: 3.75 MG
     Route: 048
     Dates: start: 20010101

REACTIONS (2)
  - OESOPHAGEAL PAIN [None]
  - THROAT IRRITATION [None]
